FAERS Safety Report 12821478 (Version 3)
Quarter: 2017Q2

REPORT INFORMATION
  Report Type: Report from Study
  Country: US (occurrence: US)
  Receive Date: 20161006
  Receipt Date: 20170511
  Transmission Date: 20170830
  Serious: Yes (Hospitalization)
  Sender: FDA-Public Use
  Company Number: US-ACTELION-A-US2016-143285

PATIENT
  Age: 79 Year
  Sex: Male
  Weight: 112.47 kg

DRUGS (4)
  1. ELIQUIS [Concomitant]
     Active Substance: APIXABAN
  2. OXYGEN. [Concomitant]
     Active Substance: OXYGEN
     Route: 045
  3. TYVASO [Concomitant]
     Active Substance: TREPROSTINIL
     Dosage: UNK
     Dates: end: 20160921
  4. TRACLEER [Suspect]
     Active Substance: BOSENTAN
     Indication: PULMONARY ARTERIAL HYPERTENSION
     Dosage: 125 MG, BID
     Route: 048
     Dates: start: 20110131

REACTIONS (11)
  - Urinary retention [Unknown]
  - Epistaxis [Unknown]
  - Dyspnoea [Unknown]
  - Fluid overload [Unknown]
  - Cardiac pacemaker insertion [Unknown]
  - Oxygen saturation decreased [Unknown]
  - Atrial flutter [Unknown]
  - Left ventricular failure [Unknown]
  - Oedema [Unknown]
  - Atrial fibrillation [Unknown]
  - Cardiac failure congestive [Unknown]
